FAERS Safety Report 6127342-6 (Version None)
Quarter: 2009Q1

REPORT INFORMATION
  Report Type: 
  Country: None (occurrence: None)
  Receive Date: 20090319
  Receipt Date: 20090311
  Transmission Date: 20090719
  Serious: Yes (Other)
  Sender: FDA-Public Use
  Company Number: 2009US000727

PATIENT
  Age: 38 Year
  Sex: Male

DRUGS (2)
  1. PROGRAF [Suspect]
     Indication: GRAFT VERSUS HOST DISEASE
     Dosage: /D
  2. MYCOPHENOLATE MOFETIL [Suspect]
     Indication: GRAFT VERSUS HOST DISEASE
     Dosage: /D

REACTIONS (5)
  - CHRONIC GRAFT VERSUS HOST DISEASE [None]
  - MANIA [None]
  - MYOPATHY [None]
  - OBLITERATIVE BRONCHIOLITIS [None]
  - PULMONARY EOSINOPHILIA [None]
